FAERS Safety Report 15774303 (Version 1)
Quarter: 2018Q4

REPORT INFORMATION
  Report Type: Spontaneous
  Country: AU (occurrence: AU)
  Receive Date: 20181229
  Receipt Date: 20181229
  Transmission Date: 20190205
  Serious: Yes (Hospitalization, Other)
  Sender: FDA-Public Use
  Company Number: AU-MICRO LABS LIMITED-ML2018-02852

PATIENT
  Age: 48 Year
  Sex: Male

DRUGS (5)
  1. DOXEPIN [Suspect]
     Active Substance: DOXEPIN
     Indication: IDIOPATHIC ANGIOEDEMA
  2. OMALIZUMAB. [Suspect]
     Active Substance: OMALIZUMAB
     Indication: IDIOPATHIC ANGIOEDEMA
  3. MONTELUKAST [Suspect]
     Active Substance: MONTELUKAST SODIUM
     Indication: IDIOPATHIC ANGIOEDEMA
  4. TRANEXAMIC ACID. [Suspect]
     Active Substance: TRANEXAMIC ACID
     Indication: IDIOPATHIC ANGIOEDEMA
  5. EPINEPHRINE. [Suspect]
     Active Substance: EPINEPHRINE
     Indication: IDIOPATHIC ANGIOEDEMA

REACTIONS (1)
  - Drug ineffective [Unknown]
